FAERS Safety Report 5760116-4 (Version None)
Quarter: 2008Q2

REPORT INFORMATION
  Report Type: 
  Country: None (occurrence: None)
  Receive Date: 20080605
  Receipt Date: 20080530
  Transmission Date: 20081010
  Serious: Yes (Death)
  Sender: FDA-Public Use
  Company Number: GB-BOEHRINGER INGELHEIM GMBH, GERMANY-2008-BP-08499RO

PATIENT

DRUGS (2)
  1. METHOTREXATE [Suspect]
     Indication: RHEUMATOID ARTHRITIS
  2. ANTI-TNF ALPHA DRUG [Suspect]
     Indication: RHEUMATOID ARTHRITIS

REACTIONS (1)
  - PULMONARY FIBROSIS [None]
